FAERS Safety Report 8536458-6 (Version None)
Quarter: 2012Q3

REPORT INFORMATION
  Report Type: 
  Country: None (occurrence: None)
  Receive Date: 20120725
  Receipt Date: 20120719
  Transmission Date: 20120928
  Serious: Yes (Other)
  Sender: FDA-Public Use
  Company Number: CA-ROCHE-1091244

PATIENT
  Sex: Female
  Weight: 64 kg

DRUGS (3)
  1. AVASTIN [Suspect]
     Indication: GLIOBLASTOMA
     Route: 042
     Dates: start: 20100727
  2. TEMODAL [Concomitant]
  3. AVASTIN [Suspect]
     Dates: start: 20120227, end: 20120704

REACTIONS (1)
  - HERPES ZOSTER [None]
